FAERS Safety Report 24450325 (Version 1)
Quarter: 2024Q4

REPORT INFORMATION
  Report Type: Spontaneous
  Country: US (occurrence: US)
  Receive Date: 20241017
  Receipt Date: 20241017
  Transmission Date: 20250114
  Serious: Yes (Death)
  Sender: JOHNSON AND JOHNSON
  Company Number: US-JNJFOC-20241044220

PATIENT
  Age: 38 Year
  Sex: Male

DRUGS (1)
  1. REMICADE [Suspect]
     Active Substance: INFLIXIMAB
     Indication: Granuloma
     Route: 041

REACTIONS (3)
  - Rubella [Fatal]
  - Off label use [Unknown]
  - Therapeutic product effect incomplete [Unknown]
